FAERS Safety Report 6435157-4 (Version None)
Quarter: 2009Q4

REPORT INFORMATION
  Report Type: 
  Country: None (occurrence: None)
  Receive Date: 20091110
  Receipt Date: 20090922
  Transmission Date: 20100525
  Serious: No
  Sender: FDA-Public Use
  Company Number: US-BRISTOL-MYERS SQUIBB COMPANY-14772750

PATIENT
  Age: 66 Year
  Sex: Female

DRUGS (2)
  1. IXEMPRA KIT [Suspect]
     Indication: BREAST CANCER
     Route: 042
     Dates: start: 20080910
  2. IXEMPRA KIT [Suspect]
     Indication: METASTASES TO BONE
     Route: 042
     Dates: start: 20080910

REACTIONS (3)
  - ERYTHEMA [None]
  - EXTRAVASATION [None]
  - SWELLING [None]
